FAERS Safety Report 9555043 (Version 1)
Quarter: 2013Q3

REPORT INFORMATION
  Report Type: Spontaneous
  Country: US (occurrence: None)
  Receive Date: 20130925
  Receipt Date: 20130925
  Transmission Date: 20140515
  Serious: No
  Sender: FDA-Public Use
  Company Number: None

PATIENT
  Age: 63 Year
  Sex: Male
  Weight: 102.6 kg

DRUGS (1)
  1. BUPRENORPHINE/NALOXONE [Suspect]
     Dosage: 1 TABLET
     Route: 048
     Dates: start: 20130417, end: 20130501

REACTIONS (1)
  - Tremor [None]
